FAERS Safety Report 4347330-X (Version None)
Quarter: 2004Q1

REPORT INFORMATION
  Report Type: 
  Country: None (occurrence: None)
  Receive Date: 20040329
  Receipt Date: 20040206
  Transmission Date: 20041129
  Serious: No
  Sender: FDA-Public Use
  Company Number: USA040258811

PATIENT
  Age: 55 Year
  Sex: Male

DRUGS (2)
  1. STRATTERA [Suspect]
     Indication: ATTENTION DEFICIT/HYPERACTIVITY DISORDER
     Dosage: 25 MG/3 DAY
     Dates: start: 20040113
  2. PROZAC [Concomitant]

REACTIONS (3)
  - INSOMNIA [None]
  - NIGHT SWEATS [None]
  - PERIPHERAL COLDNESS [None]
